FAERS Safety Report 25503797 (Version 1)
Quarter: 2025Q2

REPORT INFORMATION
  Report Type: Spontaneous
  Country: US (occurrence: None)
  Receive Date: 20250630
  Receipt Date: 20250630
  Transmission Date: 20250716
  Serious: Yes (Other)
  Sender: FDA-CTU
  Company Number: None

PATIENT
  Age: 29 Year
  Sex: Male
  Weight: 112.5 kg

DRUGS (2)
  1. JOURNAVX [Suspect]
     Active Substance: SUZETRIGINE
     Indication: Pain in extremity
     Dates: start: 20250628, end: 20250629
  2. JOURNAVX [Suspect]
     Active Substance: SUZETRIGINE
     Indication: Leg amputation

REACTIONS (5)
  - Somnolence [None]
  - Hypersomnia [None]
  - Vomiting [None]
  - Gastrointestinal disorder [None]
  - Dehydration [None]

NARRATIVE: CASE EVENT DATE: 20250628
